FAERS Safety Report 6186692-8 (Version None)
Quarter: 2009Q2

REPORT INFORMATION
  Report Type: 
  Country: None (occurrence: None)
  Receive Date: 20090512
  Receipt Date: 20090504
  Transmission Date: 20091009
  Serious: Yes (Hospitalization, Other)
  Sender: FDA-Public Use
  Company Number: PHHY2009US16909

PATIENT
  Age: 87 Year
  Sex: Male

DRUGS (12)
  1. LOPRESSOR [Suspect]
     Dosage: 150 MG, UNK
  2. LOPRESSOR [Suspect]
     Dosage: 100 MG, UNK
  3. LOPRESSOR [Suspect]
     Dosage: 25 MG, BID
  4. HYDROCHLOROTHIAZIDE [Suspect]
     Dosage: 40 MG OLMESARTAN AND 12.5 MG HYDROCHLOROTHIAZIDE DAILY
  5. DIGOXIN [Suspect]
     Dosage: 0.25 MG AND 0.125 MG ALTERNATING EVERY OTHER DAY
  6. COUMADIN [Concomitant]
     Dosage: 2 MG, UNK
  7. FLECAINIDE ACETATE [Concomitant]
     Dosage: 50 MG, BID
  8. FLECAINIDE ACETATE [Concomitant]
     Dosage: 100 MG, BID
  9. FLECAINIDE ACETATE [Concomitant]
     Dosage: 150 MG, BID
  10. FLECAINIDE ACETATE [Concomitant]
     Dosage: 125 MG, BID
  11. POTASSIUM CHLORIDE [Concomitant]
     Dosage: 10 MILLIEQUIVALENT DAILY
  12. TORSEMIDE [Concomitant]
     Dosage: 10 MG DAILY

REACTIONS (17)
  - ASTHENIA [None]
  - BLOOD UREA INCREASED [None]
  - BRADYCARDIA [None]
  - BRAIN NATRIURETIC PEPTIDE [None]
  - CARDIAC DISORDER [None]
  - CARDIAC FAILURE [None]
  - CARDIAC MURMUR [None]
  - CARDIAC PACEMAKER INSERTION [None]
  - EJECTION FRACTION DECREASED [None]
  - GAIT DISTURBANCE [None]
  - MALAISE [None]
  - MITRAL VALVE INCOMPETENCE [None]
  - POLLAKIURIA [None]
  - RESTLESSNESS [None]
  - SYNCOPE [None]
  - TACHYCARDIA [None]
  - VISION BLURRED [None]
